FAERS Safety Report 6822168-X (Version None)
Quarter: 2010Q3

REPORT INFORMATION
  Report Type: 
  Country: None (occurrence: None)
  Receive Date: 20100707
  Receipt Date: 20100707
  Transmission Date: 20110219
  Serious: Yes (Hospitalization)
  Sender: FDA-Public Use
  Company Number: None

PATIENT
  Age: 48 Year
  Sex: Male
  Weight: 95.5 kg

DRUGS (9)
  1. VIDAZA [Suspect]
     Indication: SARCOMA
     Dosage: 220MG DAYS 1-4 + 15-18 SQ
     Route: 058
     Dates: start: 20100517, end: 20100617
  2. TARCEVA [Suspect]
     Indication: SARCOMA
     Dosage: 150MG DAYS 1-28 PO
     Route: 048
     Dates: start: 20100517, end: 20100701
  3. FENTANYL-75 [Concomitant]
  4. HYDROMORPHONE [Concomitant]
  5. OXYCODONE HCL [Concomitant]
  6. DILAUDID [Concomitant]
  7. ONDANSETRON [Concomitant]
  8. KC1 [Concomitant]
  9. FONDAPARINUX SODIUM [Concomitant]

REACTIONS (5)
  - ESCHERICHIA TEST POSITIVE [None]
  - HAEMOGLOBIN DECREASED [None]
  - NEUTROPHIL COUNT DECREASED [None]
  - PAIN [None]
  - PYREXIA [None]
